FAERS Safety Report 19063208 (Version 1)
Quarter: 2021Q1

REPORT INFORMATION
  Report Type: Spontaneous
  Country: US (occurrence: US)
  Receive Date: 20210326
  Receipt Date: 20210326
  Transmission Date: 20210420
  Serious: Yes (Death, Hospitalization)
  Sender: FDA-Public Use
  Company Number: None

PATIENT
  Age: 83 Year
  Sex: Male
  Weight: 113 kg

DRUGS (10)
  1. DEXAMETHASONE. [Concomitant]
     Active Substance: DEXAMETHASONE
     Dates: start: 20201231
  2. TIOTROPIUM [Concomitant]
     Active Substance: TIOTROPIUM
  3. BAMLANIVIMAB. [Suspect]
     Active Substance: BAMLANIVIMAB
     Indication: COVID-19
     Dosage: ?          OTHER FREQUENCY:ONCE;?
     Route: 041
     Dates: start: 20210104, end: 20210104
  4. OMEPRAZOLE. [Concomitant]
     Active Substance: OMEPRAZOLE
  5. GABAPENTIN. [Concomitant]
     Active Substance: GABAPENTIN
  6. OXYBUTYNIN. [Concomitant]
     Active Substance: OXYBUTYNIN CHLORIDE
  7. SIMVASTATIN. [Concomitant]
     Active Substance: SIMVASTATIN
  8. SYMBICORT [Concomitant]
     Active Substance: BUDESONIDE\FORMOTEROL FUMARATE DIHYDRATE
  9. DULOXETINE. [Concomitant]
     Active Substance: DULOXETINE
  10. OXYCODONE [Concomitant]
     Active Substance: OXYCODONE

REACTIONS (7)
  - Asthma [None]
  - Transfusion reaction [None]
  - Pneumonia bacterial [None]
  - COVID-19 pneumonia [None]
  - Hypervolaemia [None]
  - Cardiac failure congestive [None]
  - Hypoxia [None]

NARRATIVE: CASE EVENT DATE: 20210104
